APPROVED DRUG PRODUCT: TECHNETIUM TC-99M MEDRONATE KIT
Active Ingredient: TECHNETIUM TC-99M MEDRONATE KIT
Strength: N/A
Dosage Form/Route: INJECTABLE;INJECTION
Application: N018107 | Product #001 | TE Code: AP
Applicant: CARDINAL HEALTH 414 LLC CARDINAL HEALTH NUCLEAR PHARMACY SERVICES 
Approved: Approved Prior to Jan 1, 1982 | RLD: No | RS: No | Type: RX